FAERS Safety Report 5049620-4 (Version None)
Quarter: 2006Q3

REPORT INFORMATION
  Report Type: 
  Country: None (occurrence: None)
  Receive Date: 20060706
  Receipt Date: 20060621
  Transmission Date: 20061208
  Serious: Yes (Hospitalization)
  Sender: FDA-Public Use
  Company Number: SPV1-2006-00021

PATIENT
  Age: 63 Year
  Sex: Male

DRUGS (8)
  1. LANTHANUM CARBONATE(LANTHANUM CARBONATE) TABLET CHEWABLE [Suspect]
     Indication: HYPERPHOSPHATAEMIA
     Dosage: SEE IMAGE
     Route: 048
     Dates: start: 20050314, end: 20050424
  2. LANTHANUM CARBONATE(LANTHANUM CARBONATE) TABLET CHEWABLE [Suspect]
     Indication: HYPERPHOSPHATAEMIA
     Dosage: SEE IMAGE
     Route: 048
     Dates: start: 20050425, end: 20060601
  3. FAMOTIDINE [Concomitant]
  4. ALFAROL (ALFACALCIDOL) [Concomitant]
  5. AMOBAN (ZOPICLONE) [Concomitant]
  6. EPOGEN [Concomitant]
  7. HEPARIN [Concomitant]
  8. IRON (IRON) [Concomitant]

REACTIONS (2)
  - CHOLECYSTITIS [None]
  - CHOLELITHIASIS [None]
